FAERS Safety Report 7562362-6 (Version None)
Quarter: 2011Q2

REPORT INFORMATION
  Report Type: 
  Country: None (occurrence: None)
  Receive Date: 20110620
  Receipt Date: 20110620
  Transmission Date: 20111010
  Serious: Yes (Hospitalization)
  Sender: FDA-Public Use
  Company Number: None

PATIENT
  Age: 79 Year
  Sex: Male
  Weight: 89.6 kg

DRUGS (1)
  1. FLUOXETINE HCL [Suspect]
     Indication: PANIC ATTACK
     Dosage: 20MG EVERY DAY PO
     Route: 048
     Dates: start: 20110512, end: 20110517

REACTIONS (3)
  - DYSSTASIA [None]
  - SEROTONIN SYNDROME [None]
  - PAIN [None]
